FAERS Safety Report 4457741-X (Version None)
Quarter: 2004Q3

REPORT INFORMATION
  Report Type: 
  Country: None (occurrence: None)
  Receive Date: 20040831
  Receipt Date: 20040614
  Transmission Date: 20050211
  Serious: No
  Sender: FDA-Public Use
  Company Number: FABR-10460

PATIENT
  Age: 49 Year
  Sex: Female
  Weight: 54.4316 kg

DRUGS (3)
  1. FABRAZYME [Suspect]
     Indication: FABRY'S DISEASE
     Dosage: 70 MG Q2WKS IV
     Route: 042
     Dates: start: 20031030
  2. XANAX [Concomitant]
  3. CENESTIN [Concomitant]

REACTIONS (3)
  - ECCHYMOSIS [None]
  - INSOMNIA [None]
  - WEIGHT DECREASED [None]
